FAERS Safety Report 23384489 (Version 6)
Quarter: 2024Q2

REPORT INFORMATION
  Report Type: Spontaneous
  Country: US (occurrence: US)
  Receive Date: 20240109
  Receipt Date: 20240624
  Transmission Date: 20240716
  Serious: No
  Sender: FDA-Public Use
  Company Number: US-PFIZER INC-202400001105

PATIENT
  Age: 68 Year
  Sex: Female
  Weight: 64.863 kg

DRUGS (2)
  1. PREMARIN [Suspect]
     Active Substance: ESTROGENS, CONJUGATED
     Indication: Hyperhidrosis
     Dosage: UNK
     Route: 048
     Dates: start: 20231228
  2. PREMARIN [Suspect]
     Active Substance: ESTROGENS, CONJUGATED
     Indication: Feeling hot

REACTIONS (2)
  - Pruritus [Recovered/Resolved]
  - Product dose omission in error [Recovered/Resolved]
